FAERS Safety Report 12545507 (Version 1)
Quarter: 2016Q3

REPORT INFORMATION
  Report Type: Spontaneous
  Country: JP (occurrence: JP)
  Receive Date: 20160711
  Receipt Date: 20160711
  Transmission Date: 20161109
  Serious: Yes (Other)
  Sender: FDA-Public Use
  Company Number: JP-JNJFOC-20160703985

PATIENT

DRUGS (4)
  1. PEGINTERFERON ALFA-2A [Suspect]
     Active Substance: PEGINTERFERON ALFA-2A
     Indication: HEPATITIS C
     Dosage: 12 WEEKS IN 28 PATIENTS^
     Route: 065
  2. RIBAVIRIN. [Suspect]
     Active Substance: RIBAVIRIN
     Indication: HEPATITIS C
     Dosage: 400-1000 MG BASED ON BODY WEIGHT, 12 WEEKS
     Route: 048
  3. PEGINTERFERON ALFA-2B [Suspect]
     Active Substance: PEGINTERFERON ALFA-2B
     Indication: HEPATITIS C
     Dosage: 1 TO 1.5 MCG/KG, 12 WEEKS IN 62 PATIENTS^
     Route: 065
  4. SIMEPREVIR [Suspect]
     Active Substance: SIMEPREVIR
     Indication: HEPATITIS C
     Dosage: 12 WEEKS
     Route: 065

REACTIONS (7)
  - Upper gastrointestinal haemorrhage [Unknown]
  - Viral load increased [Unknown]
  - Remission not achieved [Unknown]
  - Off label use [Unknown]
  - Mental disorder [Unknown]
  - Jaundice [Unknown]
  - Product use issue [Unknown]
